FAERS Safety Report 5800132-7 (Version None)
Quarter: 2008Q3

REPORT INFORMATION
  Report Type: 
  Country: None (occurrence: None)
  Receive Date: 20080703
  Receipt Date: 20080627
  Transmission Date: 20090109
  Serious: Yes (Hospitalization, Other)
  Sender: FDA-Public Use
  Company Number: US-ROCHE-479475

PATIENT
  Sex: Female
  Weight: 65.3 kg

DRUGS (7)
  1. ACCUTANE [Suspect]
     Indication: ACNE
     Route: 048
     Dates: start: 19980326, end: 19980911
  2. ACCUTANE [Suspect]
     Route: 048
     Dates: start: 19830101
  3. CLINDAMYCIN [Concomitant]
     Route: 048
     Dates: start: 19980811
  4. MINOCIN [Concomitant]
  5. TEMOVATE [Concomitant]
     Route: 061
     Dates: start: 19980530
  6. AVITA CREAM [Concomitant]
     Indication: ECZEMA
     Route: 061
     Dates: start: 19980827
  7. AQUAPHOR [Concomitant]
     Dates: start: 19980429

REACTIONS (17)
  - ADJUSTMENT DISORDER WITH DEPRESSED MOOD [None]
  - ANXIETY [None]
  - ARTHRALGIA [None]
  - AUTOIMMUNE THYROIDITIS [None]
  - CROHN'S DISEASE [None]
  - CYST [None]
  - EYE INFLAMMATION [None]
  - ILEITIS [None]
  - INFLAMMATORY BOWEL DISEASE [None]
  - KERATOCONJUNCTIVITIS SICCA [None]
  - MAJOR DEPRESSION [None]
  - PELVIC INFLAMMATORY DISEASE [None]
  - PYREXIA [None]
  - STRESS URINARY INCONTINENCE [None]
  - SUICIDAL IDEATION [None]
  - SUICIDE ATTEMPT [None]
  - UTERINE PROLAPSE [None]
